FAERS Safety Report 10872928 (Version 1)
Quarter: 2015Q1

REPORT INFORMATION
  Report Type: Spontaneous
  Country: US (occurrence: None)
  Receive Date: 20150219
  Receipt Date: 20150219
  Transmission Date: 20150721
  Serious: Yes (Hospitalization)
  Sender: FDA-Public Use
  Company Number: None

PATIENT
  Age: 59 Year
  Sex: Female
  Weight: 61.69 kg

DRUGS (2)
  1. SUNITINIB [Suspect]
     Active Substance: SUNITINIB
     Indication: BREAST CANCER METASTATIC
     Dosage: 25 MG 1 CAP QD PO
     Route: 048
     Dates: start: 20150115
  2. CRIZOTINIB [Suspect]
     Active Substance: CRIZOTINIB
     Indication: BREAST CANCER METASTATIC
     Dosage: 200 MG 2 CAPS BID PO?
     Route: 048
     Dates: start: 20150115

REACTIONS (6)
  - Pneumonia [None]
  - Laboratory test interference [None]
  - Atelectasis [None]
  - Lung consolidation [None]
  - Dyspnoea [None]
  - Pleural effusion [None]

NARRATIVE: CASE EVENT DATE: 20150210
